FAERS Safety Report 5326374-5 (Version None)
Quarter: 2007Q2

REPORT INFORMATION
  Report Type: 
  Country: None (occurrence: None)
  Receive Date: 20070516
  Receipt Date: 20070514
  Transmission Date: 20071010
  Serious: Yes (Hospitalization)
  Sender: FDA-Public Use
  Company Number: B0470771A

PATIENT
  Age: 99 Year
  Sex: Female

DRUGS (10)
  1. CLAMOXYL [Suspect]
     Indication: URINARY TRACT INFECTION
     Dosage: 2G PER DAY
     Route: 048
     Dates: start: 20070318, end: 20070328
  2. AUGMENTIN '125' [Suspect]
     Indication: URINARY TRACT INFECTION
     Dosage: 2UNIT PER DAY
     Route: 048
     Dates: start: 20070316, end: 20070328
  3. COLCHICINE HOUDE [Suspect]
     Indication: CHONDROCALCINOSIS
     Dosage: 1UNIT PER DAY
     Route: 048
     Dates: start: 20070320, end: 20070325
  4. CIPRALAN [Concomitant]
  5. CREON [Concomitant]
  6. DAFLON [Concomitant]
  7. DI-ANTALVIC [Concomitant]
  8. TRIATEC [Concomitant]
  9. PERIDYS [Concomitant]
  10. ZOLOFT [Concomitant]

REACTIONS (3)
  - DEHYDRATION [None]
  - DIARRHOEA [None]
  - RENAL FAILURE [None]
